FAERS Safety Report 6735464-1 (Version None)
Quarter: 2010Q2

REPORT INFORMATION
  Report Type: 
  Country: None (occurrence: None)
  Receive Date: 20100521
  Receipt Date: 20100518
  Transmission Date: 20101027
  Serious: Yes (Death)
  Sender: FDA-Public Use
  Company Number: PHHY2010GB25477

PATIENT
  Sex: Male
  Weight: 101 kg

DRUGS (5)
  1. CLOZARIL [Suspect]
     Indication: SCHIZOPHRENIA
     Dosage: UNK
     Route: 048
     Dates: start: 19970916
  2. CLOZARIL [Suspect]
     Dosage: 475 MG, DAY
     Route: 048
     Dates: start: 20100406
  3. CLOZARIL [Suspect]
     Dosage: 450MG PER DAY
     Route: 048
  4. HYOSCINE HBR HYT [Concomitant]
     Indication: SALIVARY HYPERSECRETION
     Dosage: 600UG
     Route: 048
  5. VALPROATE SODIUM [Concomitant]
     Indication: MOOD SWINGS
     Dosage: 600MG
     Route: 048

REACTIONS (1)
  - DEATH [None]
